FAERS Safety Report 4337297-2 (Version None)
Quarter: 2004Q2

REPORT INFORMATION
  Report Type: 
  Country: None (occurrence: None)
  Receive Date: 20040408
  Receipt Date: 20040330
  Transmission Date: 20050107
  Serious: Yes (Other)
  Sender: FDA-Public Use
  Company Number: 2004021867

PATIENT
  Sex: 0

DRUGS (2)
  1. NORVASC [Suspect]
     Indication: ILL-DEFINED DISORDER
     Dosage: 5 MG (OD), ORAL
     Route: 048
  2. ACE INHIBITOR NOS (ACE INHIBITOR NOS) [Suspect]
     Indication: ILL-DEFINED DISORDER

REACTIONS (2)
  - ANGIONEUROTIC OEDEMA [None]
  - DRUG INTERACTION [None]
